FAERS Safety Report 15771228 (Version 1)
Quarter: 2018Q4

REPORT INFORMATION
  Report Type: Spontaneous
  Country: ZA (occurrence: ZA)
  Receive Date: 20181228
  Receipt Date: 20181228
  Transmission Date: 20190205
  Serious: Yes (Disabling)
  Sender: FDA-Public Use
  Company Number: ZA-PFIZER INC-2018530431

PATIENT
  Sex: Female

DRUGS (5)
  1. METHOTREXATE. [Suspect]
     Active Substance: METHOTREXATE
     Dosage: UNK UNK, WEEKLY
  2. SALAZOPYRIN [Suspect]
     Active Substance: SULFASALAZINE
  3. CYCLOSPORIN [Suspect]
     Active Substance: CYCLOSPORINE
  4. CHLOROQUINE. [Suspect]
     Active Substance: CHLOROQUINE
  5. ARAVA [Suspect]
     Active Substance: LEFLUNOMIDE

REACTIONS (2)
  - Treatment failure [Unknown]
  - Wheelchair user [Unknown]
